FAERS Safety Report 8349173-9 (Version None)
Quarter: 2012Q2

REPORT INFORMATION
  Report Type: 
  Country: None (occurrence: None)
  Receive Date: 20120510
  Receipt Date: 20120430
  Transmission Date: 20120825
  Serious: Yes (Other)
  Sender: FDA-Public Use
  Company Number: US-BRISTOL-MYERS SQUIBB COMPANY-16496739

PATIENT
  Age: 68 Year
  Sex: Male

DRUGS (5)
  1. LIPITOR [Concomitant]
  2. OMEPRAZOLE [Concomitant]
  3. ACETYLSALICYLIC ACID SRT [Concomitant]
  4. SYNTHROID [Concomitant]
  5. ORENCIA [Suspect]
     Indication: RHEUMATOID ARTHRITIS
     Dosage: INTERRUPTED ON FEB-12
     Route: 042
     Dates: start: 20110901

REACTIONS (1)
  - CUTANEOUS LUPUS ERYTHEMATOSUS [None]
